FAERS Safety Report 12447269 (Version 1)
Quarter: 2016Q2

REPORT INFORMATION
  Report Type: Spontaneous
  Country: US (occurrence: None)
  Receive Date: 20160607
  Receipt Date: 20160607
  Transmission Date: 20160815
  Serious: Yes (Life-Threatening, Hospitalization)
  Sender: FDA-Public Use
  Company Number: None

PATIENT
  Age: 61 Year
  Sex: Male
  Weight: 65.77 kg

DRUGS (4)
  1. BLOOD PRESSURE/PAIN MED [Concomitant]
  2. ONE A DAY MEN OVER 50 VITAMIN [Concomitant]
  3. ANXIETY MED [Concomitant]
  4. DULOXETINE HCL [Suspect]
     Active Substance: DULOXETINE HYDROCHLORIDE
     Indication: FIBROMYALGIA
     Route: 048
     Dates: start: 20160508, end: 20160508

REACTIONS (5)
  - Blood count abnormal [None]
  - Nausea [None]
  - Blood sodium decreased [None]
  - Diarrhoea [None]
  - Malaise [None]

NARRATIVE: CASE EVENT DATE: 20160504
